FAERS Safety Report 7341282-6 (Version None)
Quarter: 2011Q1

REPORT INFORMATION
  Report Type: 
  Country: None (occurrence: None)
  Receive Date: 20110309
  Receipt Date: 20110302
  Transmission Date: 20110831
  Serious: Yes (Life-Threatening, Hospitalization, Disabling, Other)
  Sender: FDA-Public Use
  Company Number: PHHY2011JP10585

PATIENT
  Sex: Male

DRUGS (58)
  1. NEORAL [Suspect]
     Dosage: 40 MG, UNK
     Route: 048
     Dates: start: 20000414
  2. NEORAL [Suspect]
     Dosage: 90 MG, UNK
     Route: 048
     Dates: start: 20000425
  3. NEORAL [Suspect]
     Dosage: 80 MG, UNK
     Route: 048
     Dates: start: 20000503
  4. NEORAL [Suspect]
     Dosage: 100 MG, UNK
     Route: 048
     Dates: start: 20000506, end: 20000508
  5. NEORAL [Suspect]
     Dosage: 150 MG, UNK
     Route: 048
     Dates: start: 20000629, end: 20000630
  6. NEORAL [Suspect]
     Dosage: 160 MG, UNK
     Route: 048
     Dates: start: 20000701, end: 20000702
  7. MYCOPHENOLATE MOFETIL [Concomitant]
     Dosage: 250 MG, UNK
     Route: 048
     Dates: end: 20021224
  8. NEORAL [Suspect]
     Dosage: 55 MG, UNK
     Route: 048
     Dates: start: 20000419
  9. NEORAL [Suspect]
     Dosage: 110 MG, UNK
     Route: 048
     Dates: start: 20000509
  10. NEORAL [Suspect]
     Dosage: 140 MG, UNK
     Route: 048
     Dates: start: 20000628
  11. NEORAL [Suspect]
     Dosage: 140 MG, UNK
     Route: 048
     Dates: start: 20000703, end: 20000705
  12. NEORAL [Suspect]
     Dosage: 240 MG, UNK
     Route: 048
     Dates: start: 20000728, end: 20000806
  13. NEORAL [Suspect]
     Dosage: 320 MG, UNK
     Route: 048
     Dates: start: 20000904, end: 20001029
  14. NEORAL [Suspect]
     Dosage: 450 MG, UNK
     Route: 048
     Dates: start: 20010323, end: 20010325
  15. STEROIDS NOS [Concomitant]
     Indication: HEART TRANSPLANT
     Dosage: UNK
     Route: 048
     Dates: start: 20000426, end: 20000817
  16. NEORAL [Suspect]
     Dosage: 60 MG, UNK
     Route: 048
     Dates: start: 20000411, end: 20000412
  17. NEORAL [Suspect]
     Dosage: 85 MG, UNK
     Route: 048
     Dates: start: 20000504, end: 20000505
  18. NEORAL [Suspect]
     Dosage: 80 MG, UNK
     Route: 048
     Dates: start: 20000511
  19. NEORAL [Suspect]
     Dosage: 125 MG, UNK
     Route: 048
     Dates: start: 20000526, end: 20000627
  20. NEORAL [Suspect]
     Dosage: 300 MG, UNK
     Route: 048
     Dates: start: 20000807, end: 20000809
  21. NEORAL [Suspect]
     Dosage: 280 MG, UNK
     Route: 048
     Dates: start: 20000810
  22. NEORAL [Suspect]
     Dosage: 440 MG, UNK
     Route: 048
     Dates: start: 20010326, end: 20010327
  23. AZATHIOPRINE [Concomitant]
     Dosage: 20 MG, UNK
     Route: 048
     Dates: end: 20011015
  24. NEORAL [Suspect]
     Dosage: 20 MG, UNK
     Route: 048
     Dates: start: 20000409, end: 20000410
  25. NEORAL [Suspect]
     Dosage: 45 MG, UNK
     Route: 048
     Dates: start: 20000415
  26. NEORAL [Suspect]
     Dosage: 65 MG, UNK
     Route: 048
     Dates: start: 20000420
  27. NEORAL [Suspect]
     Dosage: 75 MG, UNK
     Route: 048
     Dates: start: 20000420
  28. NEORAL [Suspect]
     Dosage: 90 MG, UNK
     Route: 048
     Dates: start: 20000510
  29. NEORAL [Suspect]
     Dosage: 100 MG, UNK
     Route: 048
     Dates: start: 20000515
  30. NEORAL [Suspect]
     Dosage: 180 MG, UNK
     Route: 048
     Dates: start: 20000711
  31. NEORAL [Suspect]
     Dosage: 180 MG, UNK
     Route: 048
     Dates: start: 20000713, end: 20000719
  32. AZATHIOPRINE [Concomitant]
     Indication: HEART TRANSPLANT
     Dosage: 20 MG, UNK
     Route: 048
     Dates: start: 20000408, end: 20000409
  33. NEORAL [Suspect]
     Dosage: 50 MG, UNK
     Route: 048
     Dates: start: 20000416, end: 20000418
  34. NEORAL [Suspect]
     Dosage: 100 MG, UNK
     Route: 048
     Dates: start: 20000426
  35. NEORAL [Suspect]
     Dosage: 135 MG, UNK
     Route: 048
     Dates: start: 20000628
  36. NEORAL [Suspect]
     Dosage: 160 MG, UNK
     Route: 048
     Dates: start: 20000710
  37. NEORAL [Suspect]
     Dosage: 160 MG, UNK
     Route: 048
     Dates: start: 20000712
  38. NEORAL [Suspect]
     Dosage: 220 MG, UNK
     Route: 048
     Dates: start: 20000727
  39. MYCOPHENOLATE MOFETIL [Concomitant]
     Indication: HEART TRANSPLANT
     Dosage: 500 MG, UNK
     Route: 048
     Dates: start: 20000410, end: 20110110
  40. NEORAL [Suspect]
     Dosage: 50 MG, UNK
     Route: 048
     Dates: start: 20000413
  41. NEORAL [Suspect]
     Dosage: 80 MG, UNK
     Route: 048
     Dates: start: 20000421
  42. NEORAL [Suspect]
     Dosage: 260 MG, UNK
     Route: 048
     Dates: start: 20000811, end: 20000828
  43. NEORAL [Suspect]
     Dosage: 340 MG, UNK
     Route: 048
     Dates: start: 20001030, end: 20010320
  44. NEORAL [Suspect]
     Dosage: 90 MG, UNK
     Route: 048
     Dates: start: 20000426, end: 20000502
  45. NEORAL [Suspect]
     Dosage: 85 MG, UNK
     Route: 048
     Dates: start: 20000512, end: 20000514
  46. NEORAL [Suspect]
     Dosage: 120 MG, UNK
     Route: 048
     Dates: start: 20000525
  47. NEORAL [Suspect]
     Dosage: 150 MG, UNK
     Route: 048
     Dates: start: 20000706, end: 20000709
  48. NEORAL [Suspect]
     Dosage: 200 MG, UNK
     Route: 048
     Dates: start: 20000720, end: 20000726
  49. NEORAL [Suspect]
     Dosage: 280 MG, UNK
     Route: 048
     Dates: start: 20000829
  50. NEORAL [Suspect]
     Dosage: 300 MG, UNK
     Route: 048
     Dates: start: 20000830
  51. NEORAL [Suspect]
     Dosage: 360 MG, UNK
     Route: 048
     Dates: start: 20000831, end: 20000903
  52. NEORAL [Suspect]
     Indication: HEART TRANSPLANT
     Dosage: 10 MG, UNK
     Route: 048
     Dates: start: 20000408
  53. NEORAL [Suspect]
     Dosage: 110 MG, UNK
     Route: 048
     Dates: start: 20000516, end: 20000524
  54. NEORAL [Suspect]
     Dosage: 360 MG, UNK
     Route: 048
     Dates: start: 20010321
  55. NEORAL [Suspect]
     Dosage: 400 MG, UNK
     Route: 048
     Dates: start: 20010322
  56. AZATHIOPRINE [Concomitant]
     Dosage: 40 MG, UNK
     Route: 048
  57. CERTICAN [Concomitant]
     Indication: HEART TRANSPLANT
     Dosage: 1 MG, UNK
     Route: 048
     Dates: start: 20110106, end: 20110110
  58. SANDIMMUNE [Concomitant]
     Indication: HEART TRANSPLANT
     Dosage: UNK
     Dates: start: 20011121, end: 20011126

REACTIONS (11)
  - LUNG INFECTION [None]
  - POSTRESUSCITATION ENCEPHALOPATHY [None]
  - RENAL IMPAIRMENT [None]
  - DEVELOPMENTAL DELAY [None]
  - COMPLICATIONS OF TRANSPLANTED HEART [None]
  - HYPOXIC-ISCHAEMIC ENCEPHALOPATHY [None]
  - LOSS OF CONSCIOUSNESS [None]
  - CEREBRAL ATROPHY [None]
  - INFECTION [None]
  - VENTRICULAR TACHYCARDIA [None]
  - CARDIAC FAILURE [None]
